FAERS Safety Report 22262551 (Version 1)
Quarter: 2023Q2

REPORT INFORMATION
  Report Type: Spontaneous
  Country: FI (occurrence: FI)
  Receive Date: 20230428
  Receipt Date: 20230428
  Transmission Date: 20230721
  Serious: Yes (Life-Threatening)
  Sender: FDA-Public Use
  Company Number: None

PATIENT
  Age: 90 Year
  Sex: Female

DRUGS (1)
  1. BRIDION [Suspect]
     Active Substance: SUGAMMADEX
     Dosage: 200 MILLIGRAM
     Dates: start: 20230412, end: 20230412

REACTIONS (2)
  - Cardiac arrest [Recovering/Resolving]
  - Pulseless electrical activity [Recovering/Resolving]

NARRATIVE: CASE EVENT DATE: 20230412
